FAERS Safety Report 7721431-8 (Version None)
Quarter: 2011Q3

REPORT INFORMATION
  Report Type: 
  Country: None (occurrence: None)
  Receive Date: 20110831
  Receipt Date: 20110824
  Transmission Date: 20111222
  Serious: Yes (Hospitalization)
  Sender: FDA-Public Use
  Company Number: CA-ROCHE-798534

PATIENT
  Sex: Male
  Weight: 110 kg

DRUGS (2)
  1. PEGINTERFERON ALFA-2A [Suspect]
     Route: 058
     Dates: start: 20100702, end: 20100901
  2. RIBAVIRIN [Suspect]
     Route: 048
     Dates: start: 20100602, end: 20100901

REACTIONS (1)
  - RENAL FAILURE [None]
